FAERS Safety Report 16964704 (Version 1)
Quarter: 2019Q4

REPORT INFORMATION
  Report Type: Report from Study
  Country: CA (occurrence: CA)
  Receive Date: 20191028
  Receipt Date: 20191028
  Transmission Date: 20200122
  Serious: Yes (Hospitalization, Other)
  Sender: FDA-Public Use
  Company Number: CA-ORION CORPORATION ORION PHARMA-TREX2019-4761

PATIENT
  Age: 65 Year
  Sex: Male
  Weight: 103 kg

DRUGS (8)
  1. RITUXAN [Suspect]
     Active Substance: RITUXIMAB
     Indication: GRANULOMATOSIS WITH POLYANGIITIS
     Route: 042
  2. ACETAMINOPHEN. [Concomitant]
     Active Substance: ACETAMINOPHEN
     Indication: PREMEDICATION
     Route: 065
  3. LANSOPRAZOLE. [Concomitant]
     Active Substance: LANSOPRAZOLE
     Route: 065
  4. DIPHENHYDRAMINE HYDROCHLORIDE. [Concomitant]
     Active Substance: DIPHENHYDRAMINE HYDROCHLORIDE
     Route: 065
  5. SEPTRA [Concomitant]
     Active Substance: SULFAMETHOXAZOLE\TRIMETHOPRIM
     Route: 065
  6. METHOTREXATE (TRADE NAME UNKNOWN) [Suspect]
     Active Substance: METHOTREXATE
     Indication: PRODUCT USED FOR UNKNOWN INDICATION
     Route: 065
  7. METHYLPREDNISOLONE. [Concomitant]
     Active Substance: METHYLPREDNISOLONE
     Route: 065
  8. PREDNISONE. [Concomitant]
     Active Substance: PREDNISONE
     Route: 065

REACTIONS (11)
  - Haemoptysis [Not Recovered/Not Resolved]
  - Hernia [Not Recovered/Not Resolved]
  - Pruritus [Not Recovered/Not Resolved]
  - Heart rate decreased [Not Recovered/Not Resolved]
  - Hypertension [Not Recovered/Not Resolved]
  - Neuroendocrine tumour [Not Recovered/Not Resolved]
  - Dyspnoea [Not Recovered/Not Resolved]
  - Oxygen saturation decreased [Not Recovered/Not Resolved]
  - Weight decreased [Not Recovered/Not Resolved]
  - Blood pressure increased [Not Recovered/Not Resolved]
  - Pancreatic mass [Not Recovered/Not Resolved]
